FAERS Safety Report 10161819 (Version 1)
Quarter: 2014Q2

REPORT INFORMATION
  Report Type: Report from Study
  Country: AU (occurrence: None)
  Receive Date: 20140507
  Receipt Date: 20140507
  Transmission Date: 20141212
  Serious: Yes (Other)
  Sender: FDA-Public Use
  Company Number: 2014-19478

PATIENT
  Sex: Male

DRUGS (1)
  1. EYLEA [Suspect]
     Indication: DIABETIC RETINAL OEDEMA
     Dosage: 2 MG, EVERY 8 WEEKS, INTRAOCULAR
     Route: 031
     Dates: start: 20121107

REACTIONS (3)
  - Blindness [None]
  - Retinal haemorrhage [None]
  - Inappropriate schedule of drug administration [None]
